FAERS Safety Report 5136518-6 (Version None)
Quarter: 2006Q4

REPORT INFORMATION
  Report Type: 
  Country: None (occurrence: None)
  Receive Date: 20061020
  Receipt Date: 20061006
  Transmission Date: 20070319
  Serious: Yes (Hospitalization)
  Sender: FDA-Public Use
  Company Number: 231146

PATIENT
  Age: 56 Year
  Sex: Male

DRUGS (5)
  1. AVASTIN [Suspect]
     Indication: COLORECTAL CANCER METASTATIC
     Dosage: 5 MG/KG,Q2W, INTRAVENOUS
     Route: 042
     Dates: start: 20051025, end: 20060928
  2. IRINOTECAN HCL [Suspect]
     Indication: COLORECTAL CANCER METASTATIC
     Dosage: 247 MG, Q2W, INTRAVENOUS
     Route: 042
     Dates: start: 20051025, end: 20060928
  3. FLUOROURACIL [Suspect]
     Indication: COLORECTAL CANCER METASTATIC
     Dosage: 3294 MG, Q2W, INTRAVENOUS; 549 MG, IV BOLUS
     Route: 042
     Dates: start: 20051025, end: 20060928
  4. FLUOROURACIL [Suspect]
     Indication: COLORECTAL CANCER METASTATIC
     Dosage: 3294 MG, Q2W, INTRAVENOUS; 549 MG, IV BOLUS
     Route: 042
     Dates: start: 20051025, end: 20060928
  5. LEUCOVORIN CALCIUM [Suspect]
     Indication: COLORECTAL CANCER METASTATIC
     Dosage: 729 MG, Q2W, INTRAVENOUS
     Route: 042
     Dates: start: 20051025, end: 20060928

REACTIONS (3)
  - INTESTINAL OBSTRUCTION [None]
  - NEUTROPHIL COUNT INCREASED [None]
  - WHITE BLOOD CELL COUNT INCREASED [None]
